APPROVED DRUG PRODUCT: LIBRIUM
Active Ingredient: CHLORDIAZEPOXIDE HYDROCHLORIDE
Strength: 10MG
Dosage Form/Route: CAPSULE;ORAL
Application: A085472 | Product #001 | TE Code: AB
Applicant: VALEANT PHARMACEUTICALS INTERNATIONAL
Approved: Approved Prior to Jan 1, 1982 | RLD: Yes | RS: No | Type: RX